FAERS Safety Report 9233095 (Version 1)
Quarter: 2013Q2

REPORT INFORMATION
  Report Type: Spontaneous
  Country: LB (occurrence: LB)
  Receive Date: 20130416
  Receipt Date: 20130416
  Transmission Date: 20140414
  Serious: Yes (Disabling, Other)
  Sender: FDA-Public Use
  Company Number: PHHY2013LB036166

PATIENT
  Age: 62 Year
  Sex: Male

DRUGS (2)
  1. ACLASTA [Suspect]
     Indication: OSTEOPOROSIS
     Dosage: 5 MG
     Route: 042
     Dates: start: 20130402
  2. PERFALGAN [Concomitant]
     Indication: INFLUENZA LIKE ILLNESS
     Dosage: UNK
     Route: 042
     Dates: start: 20130402, end: 20130402

REACTIONS (8)
  - Back pain [Recovering/Resolving]
  - Haemorrhoids [Recovering/Resolving]
  - Haemorrhoidal haemorrhage [Recovering/Resolving]
  - Pyrexia [Recovered/Resolved]
  - Chills [Recovered/Resolved]
  - Myalgia [Recovered/Resolved]
  - Headache [Recovered/Resolved]
  - Hyperhidrosis [Recovered/Resolved]
